FAERS Safety Report 7135351-3 (Version None)
Quarter: 2010Q4

REPORT INFORMATION
  Report Type: 
  Country: None (occurrence: None)
  Receive Date: 20101203
  Receipt Date: 20101124
  Transmission Date: 20110411
  Serious: Yes (Death, Other)
  Sender: FDA-Public Use
  Company Number: ES-ABBOTT-10P-144-0687645-00

PATIENT
  Age: 32 Month
  Sex: Female

DRUGS (11)
  1. VALPROIC ACID SYRUP [Suspect]
     Indication: PARTIAL SEIZURES
  2. VALPROIC ACID SYRUP [Suspect]
     Indication: CONVULSION
  3. CARBAMAZEPINE [Concomitant]
     Indication: CONVULSION
  4. PHENOBARBITAL TAB [Concomitant]
     Indication: CONVULSION
  5. LAMOTRIGINE [Concomitant]
     Indication: CONVULSION
  6. CLONAZEPAM [Concomitant]
     Indication: CONVULSION
  7. CLONAZEPAM [Concomitant]
  8. DIPHENYLHYDANTOIN [Concomitant]
     Indication: CONVULSION
  9. L-CARNITINE [Concomitant]
     Indication: CONVULSION
  10. PIRACETAM [Concomitant]
     Indication: CONVULSION
  11. DIAZEPAM [Concomitant]
     Indication: CONVULSION
     Route: 054

REACTIONS (13)
  - ACUTE RESPIRATORY DISTRESS SYNDROME [None]
  - ANAEMIA [None]
  - ASPIRATION [None]
  - COAGULATION TEST ABNORMAL [None]
  - DEPRESSED LEVEL OF CONSCIOUSNESS [None]
  - EPISTAXIS [None]
  - GASTRIC HAEMORRHAGE [None]
  - HYPOXIA [None]
  - LEUKOPENIA [None]
  - MULTI-ORGAN FAILURE [None]
  - RESPIRATORY FAILURE [None]
  - THROMBOCYTOPENIA [None]
  - TRANSAMINASES INCREASED [None]
